FAERS Safety Report 5434676-7 (Version None)
Quarter: 2007Q3

REPORT INFORMATION
  Report Type: 
  Country: None (occurrence: None)
  Receive Date: 20070831
  Receipt Date: 20070803
  Transmission Date: 20080115
  Serious: No
  Sender: FDA-Public Use
  Company Number: A0667748A

PATIENT
  Age: 38 Year
  Sex: Male

DRUGS (2)
  1. ALLI [Suspect]
  2. DIAZEPAM [Concomitant]

REACTIONS (1)
  - RECTAL DISCHARGE [None]
